FAERS Safety Report 14435898 (Version 1)
Quarter: 2018Q1

REPORT INFORMATION
  Report Type: Spontaneous
  Country: US (occurrence: US)
  Receive Date: 20180124
  Receipt Date: 20180124
  Transmission Date: 20180509
  Serious: Yes (Other)
  Sender: FDA-Public Use
  Company Number: None

PATIENT
  Age: 62 Year
  Sex: Female
  Weight: 55.35 kg

DRUGS (9)
  1. METOPROLOL. [Concomitant]
     Active Substance: METOPROLOL
  2. CALCIUM [Concomitant]
     Active Substance: CALCIUM
  3. IBUPROPHEN [Concomitant]
     Active Substance: IBUPROFEN
  4. CLARITIN [Concomitant]
     Active Substance: LORATADINE
  5. FLONASE [Concomitant]
     Active Substance: FLUTICASONE PROPIONATE
  6. PEPCID [Concomitant]
     Active Substance: FAMOTIDINE
  7. AFINITOR [Suspect]
     Active Substance: EVEROLIMUS
     Indication: METASTASES TO BREAST
     Dosage: ?          QUANTITY:1 TABLET(S);?
     Route: 048
     Dates: start: 20171110, end: 20180124
  8. VITAMIN D [Concomitant]
     Active Substance: CHOLECALCIFEROL
  9. XGEVA [Concomitant]
     Active Substance: DENOSUMAB

REACTIONS (9)
  - Arrhythmia [None]
  - Pain in extremity [None]
  - Blood glucose increased [None]
  - Weight decreased [None]
  - Heart rate increased [None]
  - Nasal discomfort [None]
  - Migraine [None]
  - Epistaxis [None]
  - Dysgeusia [None]

NARRATIVE: CASE EVENT DATE: 20180123
